FAERS Safety Report 18690228 (Version 1)
Quarter: 2020Q4

REPORT INFORMATION
  Report Type: Spontaneous
  Country: CN (occurrence: CN)
  Receive Date: 20201231
  Receipt Date: 20201231
  Transmission Date: 20210114
  Serious: Yes (Life-Threatening, Hospitalization, Other)
  Sender: FDA-Public Use
  Company Number: CN-GLAXOSMITHKLINE-CN2020APC251054

PATIENT
  Age: 36 Year
  Sex: Male

DRUGS (16)
  1. LAMIVUDINE. [Suspect]
     Active Substance: LAMIVUDINE
     Indication: HIV INFECTION
     Dosage: 0.3 G (PER DAY)
     Dates: start: 20181115
  2. ISONIAZID. [Suspect]
     Active Substance: ISONIAZID
     Dosage: 0.9 G (PER DAY)
     Dates: start: 20190315
  3. ETHAMBUTOL [Suspect]
     Active Substance: ETHAMBUTOL HYDROCHLORIDE
     Dosage: 1 G (PER DAY)
     Dates: start: 20190315
  4. ETHAMBUTOL [Suspect]
     Active Substance: ETHAMBUTOL HYDROCHLORIDE
     Indication: PULMONARY TUBERCULOSIS
     Dosage: UNK
     Dates: start: 20190114
  5. TENOFOVIR DISOPROXIL FUMARATE. [Suspect]
     Active Substance: TENOFOVIR DISOPROXIL FUMARATE
     Indication: HIV INFECTION
     Dosage: 0.3 G (PER DAY)
     Dates: start: 20181115
  6. RIFAMPIN. [Interacting]
     Active Substance: RIFAMPIN
     Dosage: 0.6 G (PER DAY)
     Dates: start: 20190315
  7. MOXIFLOXACIN. [Suspect]
     Active Substance: MOXIFLOXACIN
     Indication: PULMONARY TUBERCULOSIS
     Dosage: UNK
     Dates: start: 20190114
  8. AMIKACIN SULPHATE [Suspect]
     Active Substance: AMIKACIN SULFATE
     Indication: PULMONARY TUBERCULOSIS
     Dosage: 0.4 G (PER DAY)
     Dates: start: 20190315
  9. RIFAMPIN. [Interacting]
     Active Substance: RIFAMPIN
     Indication: PULMONARY TUBERCULOSIS
     Dosage: UNK
     Dates: start: 20190114
  10. MOXIFLOXACIN. [Suspect]
     Active Substance: MOXIFLOXACIN
     Dosage: 0.4 G (PER DAY)
     Dates: start: 20190315
  11. SULFAMETHOXAZOLE [Suspect]
     Active Substance: SULFAMETHOXAZOLE
     Dosage: UNK (1.44 G/TIME)
  12. EFAVIRENZ. [Suspect]
     Active Substance: EFAVIRENZ
     Indication: HIV INFECTION
     Dosage: 0.6 G (PER DAY)
     Dates: start: 20181115
  13. ISONIAZID. [Suspect]
     Active Substance: ISONIAZID
     Indication: PULMONARY TUBERCULOSIS
     Dosage: UNK
     Dates: start: 20190114
  14. DEXAMETHASONE. [Suspect]
     Active Substance: DEXAMETHASONE
     Indication: INFLAMMATION
     Dosage: UNK (5 MG/TIME)
     Route: 042
  15. SULFAMETHOXAZOLE [Suspect]
     Active Substance: SULFAMETHOXAZOLE
     Indication: ANTIFUNGAL PROPHYLAXIS
     Dosage: 0.48 G (PER DAY)
  16. PYRAZINAMIDE. [Suspect]
     Active Substance: PYRAZINAMIDE
     Indication: DISSEMINATED TUBERCULOSIS
     Dosage: 1.5 G (PER DAY)
     Dates: start: 20190315

REACTIONS (33)
  - Cough [Recovered/Resolved]
  - Bronchial wall thickening [Recovered/Resolved]
  - Abdominal distension [Recovered/Resolved]
  - Inflammation [Recovered/Resolved]
  - Pneumothorax [Recovered/Resolved]
  - Retroperitoneal lymphadenopathy [Recovered/Resolved]
  - Condition aggravated [Recovered/Resolved]
  - Lung opacity [Recovered/Resolved]
  - Central nervous system lesion [Recovered/Resolved]
  - Malaise [Recovered/Resolved]
  - Bronchogenic cyst [Recovered/Resolved]
  - Disseminated tuberculosis [Recovered/Resolved]
  - Haemoglobin decreased [Recovered/Resolved]
  - Nodule [Recovered/Resolved]
  - Drug interaction [Unknown]
  - Lymphadenopathy [Recovered/Resolved]
  - Pulmonary tuberculosis [Recovered/Resolved]
  - Breath sounds abnormal [Recovered/Resolved]
  - Lymph node ulcer [Recovered/Resolved]
  - Hilar lymphadenopathy [Recovered/Resolved]
  - Psoas abscess [Recovered/Resolved]
  - Lymph node pain [Recovered/Resolved]
  - Abdominal pain [Recovered/Resolved]
  - Necrosis [Recovered/Resolved]
  - Myelosuppression [Recovered/Resolved]
  - Therapeutic product effect incomplete [Unknown]
  - Lymph node abscess [Recovered/Resolved]
  - Immune reconstitution inflammatory syndrome associated tuberculosis [Recovered/Resolved]
  - Pyrexia [Recovered/Resolved]
  - Productive cough [Recovered/Resolved]
  - Lymph node tuberculosis [Recovered/Resolved]
  - Decreased appetite [Recovered/Resolved]
  - Pneumocystis jirovecii pneumonia [Recovered/Resolved]

NARRATIVE: CASE EVENT DATE: 20181215
